FAERS Safety Report 7943988-4 (Version None)
Quarter: 2011Q4

REPORT INFORMATION
  Report Type: 
  Country: None (occurrence: None)
  Receive Date: 20111128
  Receipt Date: 20111117
  Transmission Date: 20120403
  Serious: Yes (Death, Life-Threatening, Other)
  Sender: FDA-Public Use
  Company Number: US-RB-034503-11

PATIENT
  Age: 55 Year
  Sex: Male

DRUGS (4)
  1. LYRICA [Concomitant]
     Indication: PAIN
  2. CELEBREX [Concomitant]
     Indication: PAIN
  3. SUBOXONE [Suspect]
     Indication: DRUG DEPENDENCE
     Route: 060
     Dates: start: 20110808, end: 20111028
  4. INSULIN [Concomitant]
     Indication: DIABETES MELLITUS

REACTIONS (3)
  - PNEUMONIA [None]
  - SEPTIC SHOCK [None]
  - FALL [None]
